FAERS Safety Report 6004779-7 (Version None)
Quarter: 2008Q4

REPORT INFORMATION
  Report Type: 
  Country: None (occurrence: None)
  Receive Date: 20081216
  Receipt Date: 20081205
  Transmission Date: 20090506
  Serious: Yes (Hospitalization, Other)
  Sender: FDA-Public Use
  Company Number: DE-ELI_LILLY_AND_COMPANY-DE200807001330

PATIENT
  Age: 70 Year
  Sex: Female

DRUGS (3)
  1. CYMBALTA [Suspect]
     Indication: DEPRESSION
     Dosage: 60 MG, DAILY (1/D)
     Route: 048
     Dates: start: 20060101
  2. DELIX PLUS [Concomitant]
     Dosage: 5 MG, UNKNOWN
     Route: 065
  3. BISOPROLOL FUMARATE [Concomitant]
     Dosage: 2.5 MG, UNKNOWN
     Route: 065

REACTIONS (10)
  - ASPARTATE AMINOTRANSFERASE INCREASED [None]
  - BLOOD BILIRUBIN DECREASED [None]
  - C-REACTIVE PROTEIN INCREASED [None]
  - CARCINOEMBRYONIC ANTIGEN INCREASED [None]
  - EMPHYSEMA [None]
  - EPISTAXIS [None]
  - FACE INJURY [None]
  - GASTRITIS EROSIVE [None]
  - HAEMOGLOBIN DECREASED [None]
  - PROTEIN TOTAL DECREASED [None]
